FAERS Safety Report 7132603-8 (Version None)
Quarter: 2010Q4

REPORT INFORMATION
  Report Type: 
  Country: None (occurrence: None)
  Receive Date: 20101202
  Receipt Date: 20101123
  Transmission Date: 20110411
  Serious: Yes (Other)
  Sender: FDA-Public Use
  Company Number: US-PFIZER INC-2010156218

PATIENT
  Sex: Female
  Weight: 68.027 kg

DRUGS (4)
  1. LYRICA [Suspect]
     Indication: PAIN
     Dosage: 50 MG, 3X/DAY
     Route: 048
     Dates: start: 20101101
  2. STALEVO 100 [Concomitant]
     Indication: PARKINSON'S DISEASE
     Dosage: UNK
  3. AMANTADINE [Concomitant]
     Indication: PARKINSON'S DISEASE
     Dosage: UNK
  4. RASAGILINE [Concomitant]
     Indication: PARKINSON'S DISEASE
     Dosage: UNK

REACTIONS (3)
  - ACTIVITIES OF DAILY LIVING IMPAIRED [None]
  - DRUG INEFFECTIVE [None]
  - MOVEMENT DISORDER [None]
